FAERS Safety Report 17826416 (Version 2)
Quarter: 2020Q3

REPORT INFORMATION
  Report Type: Spontaneous
  Country: US (occurrence: US)
  Receive Date: 20200526
  Receipt Date: 20200813
  Transmission Date: 20201102
  Serious: Yes (Hospitalization, Congenital Anomaly, Other)
  Sender: FDA-Public Use
  Company Number: US-NAPPMUNDI-USA-2020-0152452

PATIENT
  Age: 0 Day
  Sex: Female
  Weight: 15.42 kg

DRUGS (7)
  1. FERROUS SULFATE. [Suspect]
     Active Substance: FERROUS SULFATE
     Indication: PRODUCT USED FOR UNKNOWN INDICATION
     Dosage: 10 MG, DAILY
     Route: 048
  2. MULTIVITAMINS [Suspect]
     Active Substance: VITAMINS
     Indication: PRODUCT USED FOR UNKNOWN INDICATION
     Dosage: 1 ML, DAILY
     Route: 065
  3. VACCINE HEPA B [Suspect]
     Active Substance: HEPATITIS B VIRUS VACCINE
     Indication: IMMUNISATION
     Dosage: UNK
     Route: 065
     Dates: start: 20130220
  4. HBIG [Suspect]
     Active Substance: HUMAN HEPATITIS B VIRUS IMMUNE GLOBULIN
     Indication: IMMUNISATION
     Dosage: UNK
     Dates: start: 20130219
  5. ZANTAC [Suspect]
     Active Substance: RANITIDINE HYDROCHLORIDE
     Indication: GASTROOESOPHAGEAL REFLUX DISEASE
     Dosage: 5 MG, BID
  6. OXYCONTIN [Suspect]
     Active Substance: OXYCODONE HYDROCHLORIDE
     Indication: PRODUCT USED FOR UNKNOWN INDICATION
     Dosage: 80 MG, UNK
     Route: 065
  7. HEPATITIS B [Suspect]
     Active Substance: HUMAN HEPATITIS B VIRUS IMMUNE GLOBULIN
     Indication: IMMUNISATION
     Dosage: UNK
     Route: 065
     Dates: start: 20130323

REACTIONS (35)
  - Developmental delay [Unknown]
  - Immobile [Unknown]
  - Selective eating disorder [Unknown]
  - Hospitalisation [Unknown]
  - Congenital anomaly [Unknown]
  - Anaemia [Unknown]
  - Apnoea [None]
  - Renal fusion anomaly [Unknown]
  - Maternal exposure during pregnancy [Unknown]
  - Disability [Unknown]
  - Spina bifida [Unknown]
  - Diarrhoea [Unknown]
  - Brain malformation [Unknown]
  - Oesophagogastric fundoplasty [Unknown]
  - Catheterisation cardiac [Unknown]
  - Intellectual disability [Unknown]
  - Underweight [Unknown]
  - Nothing by mouth order [Unknown]
  - Anal atresia [Unknown]
  - Atrial septal defect [Unknown]
  - Vomiting [Unknown]
  - Feeding disorder [Unknown]
  - Gastrointestinal motility disorder [None]
  - Drug dependence [Unknown]
  - Kidney malformation [Unknown]
  - Brain injury [Unknown]
  - Learning disability [Unknown]
  - Cardiac disorder [Unknown]
  - Foot deformity [Unknown]
  - Cardiac murmur [Unknown]
  - Gastrooesophageal reflux disease [Unknown]
  - Cyst removal [Unknown]
  - Deafness [Unknown]
  - Developmental hip dysplasia [Unknown]
  - Unevaluable event [Unknown]

NARRATIVE: CASE EVENT DATE: 20130219
